FAERS Safety Report 5202689-6 (Version None)
Quarter: 2007Q1

REPORT INFORMATION
  Report Type: 
  Country: None (occurrence: None)
  Receive Date: 20070109
  Receipt Date: 20070102
  Transmission Date: 20070707
  Serious: Yes (Hospitalization)
  Sender: FDA-Public Use
  Company Number: ES-PFIZER INC-2007000394

PATIENT
  Age: 88 Year
  Sex: Male

DRUGS (8)
  1. ALDACTONE [Suspect]
     Indication: CARDIAC FAILURE
     Route: 048
     Dates: start: 20060418, end: 20061108
  2. CRINOREN [Concomitant]
     Route: 048
  3. COROPRES [Concomitant]
     Route: 048
  4. IDAPTAN [Concomitant]
     Dosage: DAILY DOSE:60MG
     Route: 048
  5. TROMALYT [Concomitant]
     Dosage: DAILY DOSE:150MG
     Route: 048
  6. ZOCOR [Concomitant]
     Dosage: DAILY DOSE:40MG
     Route: 048
  7. NITRADISC [Concomitant]
     Route: 062
  8. NOVOMIX [Concomitant]
     Route: 058

REACTIONS (3)
  - HYPERKALAEMIA [None]
  - RENAL FAILURE ACUTE [None]
  - SYNCOPE [None]
